FAERS Safety Report 6000070-3 (Version None)
Quarter: 2008Q4

REPORT INFORMATION
  Report Type: 
  Country: None (occurrence: None)
  Receive Date: 20081215
  Receipt Date: 20081204
  Transmission Date: 20090506
  Serious: Yes (Congenital Anomaly)
  Sender: FDA-Public Use
  Company Number: B0549014B

PATIENT
  Sex: Female

DRUGS (4)
  1. LAMICTAL [Suspect]
     Indication: EPILEPSY
  2. URBANYL [Suspect]
     Indication: EPILEPSY
  3. TOPIRAMATE [Suspect]
     Indication: EPILEPSY
     Dosage: 100MG PER DAY
  4. TRILEPTAL [Suspect]
     Indication: EPILEPSY

REACTIONS (5)
  - DRUG EXPOSURE DURING PREGNANCY [None]
  - DYSMORPHISM [None]
  - EAR DEFORMITY ACQUIRED [None]
  - LIMB MALFORMATION [None]
  - RETROGNATHIA [None]
